FAERS Safety Report 8290576-9 (Version None)
Quarter: 2012Q2

REPORT INFORMATION
  Report Type: 
  Country: None (occurrence: None)
  Receive Date: 20120417
  Receipt Date: 20120127
  Transmission Date: 20120825
  Serious: No
  Sender: FDA-Public Use
  Company Number: US-ASTRAZENECA-2011SE69746

PATIENT
  Age: 52 Year
  Sex: Male
  Weight: 88.5 kg

DRUGS (9)
  1. TRAMADOL HCL [Concomitant]
  2. NEXIUM [Suspect]
     Indication: GASTRIC DISORDER
     Dosage: EVERYDAY
     Route: 048
  3. SEROQUEL [Suspect]
     Route: 048
     Dates: start: 20110901
  4. SEROQUEL [Suspect]
     Indication: SLEEP DISORDER
     Dosage: 150 MG TO 200 MG QD
     Route: 048
     Dates: start: 20110901
  5. SEROQUEL [Suspect]
     Route: 048
     Dates: start: 20110901
  6. SEROQUEL [Suspect]
     Route: 048
  7. SEROQUEL [Suspect]
     Indication: BIPOLAR DISORDER
     Dosage: 150 MG TO 200 MG QD
     Route: 048
     Dates: start: 20110901
  8. SEROQUEL [Suspect]
     Route: 048
  9. LORATADINE [Concomitant]

REACTIONS (17)
  - HALLUCINATION, AUDITORY [None]
  - OFF LABEL USE [None]
  - DYSARTHRIA [None]
  - COGNITIVE DISORDER [None]
  - LIMB INJURY [None]
  - NERVOUSNESS [None]
  - DRUG DOSE OMISSION [None]
  - BACK INJURY [None]
  - HALLUCINATION, VISUAL [None]
  - DRUG INEFFECTIVE FOR UNAPPROVED INDICATION [None]
  - ACCIDENT [None]
  - SLEEP DISORDER DUE TO A GENERAL MEDICAL CONDITION [None]
  - CONFUSIONAL STATE [None]
  - HEARING IMPAIRED [None]
  - ERECTILE DYSFUNCTION [None]
  - GOUT [None]
  - INSOMNIA [None]
